FAERS Safety Report 7551494-4 (Version None)
Quarter: 2011Q2

REPORT INFORMATION
  Report Type: 
  Country: None (occurrence: None)
  Receive Date: 20110616
  Receipt Date: 20110602
  Transmission Date: 20111010
  Serious: Yes (Other)
  Sender: FDA-Public Use
  Company Number: US-ELI_LILLY_AND_COMPANY-US201106001205

PATIENT
  Sex: Female

DRUGS (12)
  1. CLONAZEPAM [Concomitant]
     Dosage: 0.25 MG, BID
     Route: 065
  2. VITAMIN D [Concomitant]
     Dosage: UNK
     Route: 065
  3. ZOCOR [Concomitant]
     Indication: BLOOD CHOLESTEROL
     Dosage: UNK
     Route: 065
  4. ASPIRIN [Concomitant]
     Dosage: UNK, BID
     Route: 065
  5. MELOXICAM [Concomitant]
     Dosage: UNK
     Route: 065
  6. CARBIDOPA + LEVODOPA [Concomitant]
     Indication: PARKINSON'S DISEASE
     Dosage: UNK, BID
     Route: 065
  7. OXYCODONE HCL [Concomitant]
     Indication: PAIN
     Dosage: UNK, EVERY 6 HRS
     Route: 065
  8. CITALOPRAM HYDROBROMIDE [Concomitant]
     Indication: DEPRESSION
     Dosage: UNK
     Route: 065
  9. LEVETIRACETAM [Concomitant]
     Indication: CONVULSION
     Dosage: UNK, BID
     Route: 065
  10. TYLENOL                                 /SCH/ [Concomitant]
     Dosage: UNK
     Route: 065
  11. FORTEO [Suspect]
     Indication: OSTEOPOROSIS
     Dosage: 20 UG, QD
     Route: 065
     Dates: start: 20101101
  12. METOPROLOL SUCCINATE [Concomitant]
     Indication: HYPERTENSION
     Dosage: UNK
     Route: 065

REACTIONS (6)
  - HIP FRACTURE [None]
  - FALL [None]
  - DECREASED APPETITE [None]
  - IMPAIRED SELF-CARE [None]
  - ASTHENIA [None]
  - DEPRESSION [None]
